FAERS Safety Report 26097281 (Version 1)
Quarter: 2025Q4

REPORT INFORMATION
  Report Type: Spontaneous
  Country: CA (occurrence: None)
  Receive Date: 20251127
  Receipt Date: 20251127
  Transmission Date: 20260118
  Serious: No
  Sender: APOTEX
  Company Number: CA-APOTEX-2025AP032508

PATIENT
  Sex: Female

DRUGS (2)
  1. IPRATROPIUM BROMIDE [4]
     Active Substance: IPRATROPIUM BROMIDE
     Indication: Product used for unknown indication
     Dosage: UNK
  2. IPRATROPIUM BROMIDE [4]
     Active Substance: IPRATROPIUM BROMIDE

REACTIONS (3)
  - Product dose omission issue [Unknown]
  - Product delivery mechanism issue [Unknown]
  - Device issue [Unknown]
